FAERS Safety Report 10149726 (Version 1)
Quarter: 2014Q2

REPORT INFORMATION
  Report Type: Spontaneous
  Country: NL (occurrence: NL)
  Receive Date: 20140502
  Receipt Date: 20140502
  Transmission Date: 20141212
  Serious: Yes (Hospitalization)
  Sender: FDA-Public Use
  Company Number: NL-IPSEN BIOPHARMACEUTICALS, INC.-2014-2142

PATIENT
  Age: 72 Year
  Sex: Male

DRUGS (2)
  1. SOMATULINE [Suspect]
     Indication: PREOPERATIVE CARE
     Dosage: NOT REPORTED
     Route: 030
     Dates: start: 20140313, end: 20140313
  2. SOMATULINE [Suspect]
     Indication: OFF LABEL USE

REACTIONS (1)
  - Pyrexia [Not Recovered/Not Resolved]
